FAERS Safety Report 4740953-5 (Version None)
Quarter: 2005Q3

REPORT INFORMATION
  Report Type: 
  Country: None (occurrence: None)
  Receive Date: 20050810
  Receipt Date: 20030908
  Transmission Date: 20060218
  Serious: Yes (Hospitalization, Disabling)
  Sender: FDA-Public Use
  Company Number: US-ROCHE-346682

PATIENT
  Age: 53 Year
  Sex: Male

DRUGS (3)
  1. FUZEON [Suspect]
     Indication: HIV INFECTION
     Dosage: RECEIVED LESS THAN PRESCRIBED 1.0 CC DOSE ON THREE OCCASIONS.
     Route: 058
     Dates: start: 20030410, end: 20050718
  2. REYATAZ [Concomitant]
     Indication: HIV INFECTION
     Route: 048
     Dates: start: 20030412
  3. VIREAD [Concomitant]
     Indication: HIV INFECTION
     Route: 048
     Dates: start: 20030412

REACTIONS (15)
  - ARTHRALGIA [None]
  - ASEPTIC NECROSIS BONE [None]
  - ASTHENIA [None]
  - DIZZINESS [None]
  - HYPERHIDROSIS [None]
  - INJECTION SITE FIBROSIS [None]
  - INJECTION SITE REACTION [None]
  - MEDICATION ERROR [None]
  - MYALGIA [None]
  - NAUSEA [None]
  - PANCREATITIS [None]
  - SPINAL FUSION SURGERY [None]
  - VIRAL LOAD INCREASED [None]
  - VISUAL DISTURBANCE [None]
  - VOMITING [None]
